FAERS Safety Report 9801163 (Version 1)
Quarter: 2014Q1

REPORT INFORMATION
  Report Type: Spontaneous
  Country: US (occurrence: US)
  Receive Date: 20140107
  Receipt Date: 20140107
  Transmission Date: 20141002
  Serious: Yes (Death)
  Sender: FDA-Public Use
  Company Number: US-FRI-1000052602

PATIENT
  Age: 82 Year
  Sex: Male

DRUGS (4)
  1. NAMENDA XR [Suspect]
     Indication: DEMENTIA
     Dosage: 7MG
     Route: 048
     Dates: start: 20130905, end: 2013
  2. NAMENDA XR [Suspect]
     Dosage: 14MG
     Route: 048
     Dates: start: 2013, end: 2013
  3. NAMENDA XR [Suspect]
     Dosage: 21MG
     Route: 048
     Dates: start: 2013, end: 2013
  4. NAMENDA XR [Suspect]
     Dosage: 28MG
     Route: 048
     Dates: start: 2013, end: 20131027

REACTIONS (4)
  - Septic shock [Fatal]
  - Pneumonia [Fatal]
  - Lactic acidosis [Fatal]
  - Ischaemia [Fatal]
